FAERS Safety Report 10488126 (Version 1)
Quarter: 2014Q4

REPORT INFORMATION
  Report Type: Spontaneous
  Country: US (occurrence: US)
  Receive Date: 20141002
  Receipt Date: 20141002
  Transmission Date: 20150528
  Serious: Yes (Hospitalization, Other)
  Sender: FDA-Public Use
  Company Number: US-AMGEN-USASP2014074293

PATIENT
  Age: 63 Year
  Sex: Male

DRUGS (3)
  1. HUMIRA [Concomitant]
     Active Substance: ADALIMUMAB
     Dosage: UNK
     Dates: start: 2005
  2. ENBREL [Suspect]
     Active Substance: ETANERCEPT
     Indication: RHEUMATOID ARTHRITIS
     Dosage: 50 MG, QWK
     Route: 065
     Dates: start: 20010701
  3. ORENCIA [Concomitant]
     Active Substance: ABATACEPT
     Dosage: UNK
     Dates: start: 2005

REACTIONS (15)
  - Drug hypersensitivity [Unknown]
  - Arthritis infective [Recovered/Resolved]
  - Tooth infection [Recovered/Resolved]
  - Back pain [Recovered/Resolved]
  - Infection [Recovered/Resolved]
  - Monoplegia [Recovered/Resolved]
  - Localised infection [Recovered/Resolved]
  - Gait disturbance [Recovered/Resolved]
  - Limb injury [Recovered/Resolved]
  - Chondropathy [Recovered/Resolved]
  - Infection susceptibility increased [Recovered/Resolved]
  - Arthralgia [Recovered/Resolved]
  - Scoliosis [Recovered/Resolved]
  - Staphylococcal infection [Recovered/Resolved]
  - Condition aggravated [Unknown]

NARRATIVE: CASE EVENT DATE: 2005
